FAERS Safety Report 18731386 (Version 2)
Quarter: 2021Q2

REPORT INFORMATION
  Report Type: Report from Study
  Country: US (occurrence: US)
  Receive Date: 20210112
  Receipt Date: 20210401
  Transmission Date: 20210717
  Serious: Yes (Other)
  Sender: FDA-Public Use
  Company Number: US-AMGEN-USASL2021000912

PATIENT
  Age: 64 Year
  Sex: Female
  Weight: 43.08 kg

DRUGS (2)
  1. ENBREL [Suspect]
     Active Substance: ETANERCEPT
     Indication: RHEUMATOID ARTHRITIS
     Dosage: 50 MILLIGRAM, QWK
     Route: 058
     Dates: start: 20201222
  2. PLAQUENIL [Concomitant]
     Active Substance: HYDROXYCHLOROQUINE SULFATE
     Dosage: UNK

REACTIONS (6)
  - Dyspnoea [Unknown]
  - Diarrhoea [Not Recovered/Not Resolved]
  - Weight decreased [Not Recovered/Not Resolved]
  - Decreased appetite [Not Recovered/Not Resolved]
  - Hypertension [Unknown]
  - Heart rate increased [Not Recovered/Not Resolved]

NARRATIVE: CASE EVENT DATE: 202012
